FAERS Safety Report 4433058-4 (Version None)
Quarter: 2004Q3

REPORT INFORMATION
  Report Type: 
  Country: None (occurrence: None)
  Receive Date: 20040823
  Receipt Date: 20040809
  Transmission Date: 20050211
  Serious: Yes (Disabling)
  Sender: FDA-Public Use
  Company Number: 200212999

PATIENT
  Age: 51 Year
  Sex: Female
  Weight: 48.9885 kg

DRUGS (2)
  1. BOTOX COSMETIC [Suspect]
     Indication: SKIN WRINKLING
     Dosage: 155 UNITS PRN IM
     Route: 030
     Dates: start: 20020618
  2. HYALAFORM [Concomitant]

REACTIONS (34)
  - ARTHRITIS [None]
  - BURNING SENSATION [None]
  - CAROTIDYNIA [None]
  - DEPRESSION [None]
  - DYSAESTHESIA [None]
  - DYSKINESIA [None]
  - DYSPHAGIA [None]
  - ELECTROMYOGRAM ABNORMAL [None]
  - HYPOAESTHESIA [None]
  - INFLUENZA [None]
  - INTERVERTEBRAL DISC DISPLACEMENT [None]
  - JOINT RANGE OF MOTION DECREASED [None]
  - JOINT SPRAIN [None]
  - LARYNGITIS [None]
  - MELANOCYTIC NAEVUS [None]
  - MUSCLE STRAIN [None]
  - MUSCLE TIGHTNESS [None]
  - MUSCULOSKELETAL STIFFNESS [None]
  - MYALGIA [None]
  - NECK PAIN [None]
  - NEUROPATHY [None]
  - NUCLEAR MAGNETIC RESONANCE IMAGING ABNORMAL [None]
  - ORAL DISCOMFORT [None]
  - PAIN [None]
  - PAIN IN JAW [None]
  - PARAESTHESIA [None]
  - RADICULOPATHY [None]
  - SCOLIOSIS [None]
  - SENSORY DISTURBANCE [None]
  - SPINAL DISORDER [None]
  - SWOLLEN TONGUE [None]
  - THROAT IRRITATION [None]
  - TONGUE DISCOLOURATION [None]
  - VTH NERVE INJURY [None]
